FAERS Safety Report 8120298-6 (Version None)
Quarter: 2012Q1

REPORT INFORMATION
  Report Type: 
  Country: None (occurrence: None)
  Receive Date: 20120207
  Receipt Date: 20120202
  Transmission Date: 20120608
  Serious: Yes (Hospitalization)
  Sender: FDA-Public Use
  Company Number: US-GLAXOSMITHKLINE-A0887120A

PATIENT
  Age: 51 Year
  Sex: Female
  Weight: 106.8 kg

DRUGS (6)
  1. METOPROLOL TARTRATE [Concomitant]
  2. GLUCOTROL [Concomitant]
  3. ALBUTEROL [Concomitant]
  4. DEPAKOTE [Concomitant]
  5. AVANDIA [Suspect]
     Indication: DIABETES MELLITUS
     Dosage: 4MG TWICE PER DAY
     Route: 048
     Dates: start: 20010718, end: 20030101
  6. ATROVENT [Concomitant]

REACTIONS (6)
  - RENAL FAILURE [None]
  - ABDOMINAL PAIN [None]
  - ACUTE PULMONARY OEDEMA [None]
  - ANGINA PECTORIS [None]
  - MICTURITION DISORDER [None]
  - CARDIAC FAILURE CONGESTIVE [None]
